FAERS Safety Report 9016436 (Version 1)
Quarter: 2013Q1

REPORT INFORMATION
  Report Type: Spontaneous
  Country: JP (occurrence: JP)
  Receive Date: 20130116
  Receipt Date: 20130116
  Transmission Date: 20140127
  Serious: Yes (Other)
  Sender: FDA-Public Use
  Company Number: JP-GLAXOSMITHKLINE-B0858099A

PATIENT
  Age: 38 Year
  Sex: Female

DRUGS (4)
  1. EPOPROSTENOL [Suspect]
     Route: 042
  2. BERAPROST SODIUM [Concomitant]
     Route: 048
  3. BOSENTAN [Concomitant]
     Route: 048
  4. TADALAFIL [Concomitant]
     Route: 048

REACTIONS (2)
  - Pulmonary oedema [Unknown]
  - Pulmonary artery dilatation [Unknown]
